FAERS Safety Report 5558219-2 (Version None)
Quarter: 2007Q4

REPORT INFORMATION
  Report Type: 
  Country: None (occurrence: None)
  Receive Date: 20071214
  Receipt Date: 20071119
  Transmission Date: 20080405
  Serious: Yes (Hospitalization, Other)
  Sender: FDA-Public Use
  Company Number: US-BAYER-US-2007-020867

PATIENT
  Age: 58 Year
  Sex: Female

DRUGS (1)
  1. BETASERON [Suspect]
     Indication: MULTIPLE SCLEROSIS
     Route: 058
     Dates: start: 20020101

REACTIONS (4)
  - HEPATIC ENZYME INCREASED [None]
  - HEPATITIS [None]
  - RENAL CELL CARCINOMA STAGE UNSPECIFIED [None]
  - WHITE BLOOD CELL COUNT DECREASED [None]
